FAERS Safety Report 20756158 (Version 3)
Quarter: 2022Q2

REPORT INFORMATION
  Report Type: Report from Study
  Country: US (occurrence: US)
  Receive Date: 20220427
  Receipt Date: 20220628
  Transmission Date: 20220720
  Serious: Yes (Hospitalization)
  Sender: FDA-Public Use
  Company Number: US-INSMED, INC.-2022-01060-US

PATIENT
  Sex: Female

DRUGS (2)
  1. ARIKAYCE [Suspect]
     Active Substance: AMIKACIN
     Indication: Product used for unknown indication
     Dosage: 590 MILLIGRAM, QD
     Route: 055
     Dates: start: 2022, end: 20220406
  2. ARIKAYCE [Suspect]
     Active Substance: AMIKACIN
     Dosage: 590 MILLIGRAM, QD
     Route: 055
     Dates: start: 202204, end: 20220528

REACTIONS (6)
  - Hospitalisation [Unknown]
  - Therapy interrupted [Unknown]
  - Drug dose omission by device [Unknown]
  - Device issue [Unknown]
  - Accidental underdose [Unknown]
  - Incorrect product administration duration [Unknown]
